FAERS Safety Report 4726808-0 (Version None)
Quarter: 2005Q3

REPORT INFORMATION
  Report Type: 
  Country: None (occurrence: None)
  Receive Date: 20050725
  Receipt Date: 20050422
  Transmission Date: 20060218
  Serious: No
  Sender: FDA-Public Use
  Company Number: USA050496765

PATIENT
  Sex: Male

DRUGS (3)
  1. STRATTERA [Suspect]
     Indication: ATTENTION DEFICIT/HYPERACTIVITY DISORDER
     Dosage: 10 MG/2 DAY
     Dates: start: 20050419, end: 20050422
  2. DEPAKOTE [Concomitant]
  3. RISPERDAL [Concomitant]

REACTIONS (1)
  - SUICIDAL IDEATION [None]
